FAERS Safety Report 5281875-3 (Version None)
Quarter: 2007Q1

REPORT INFORMATION
  Report Type: 
  Country: None (occurrence: None)
  Receive Date: 20070330
  Receipt Date: 20070312
  Transmission Date: 20070707
  Serious: Yes (Other)
  Sender: FDA-Public Use
  Company Number: US-SANOFI-SYNTHELABO-A03200702120

PATIENT
  Sex: Female

DRUGS (1)
  1. AMBIEN [Suspect]
     Indication: INSOMNIA
     Route: 048
     Dates: start: 20050805, end: 20050918

REACTIONS (17)
  - ABNORMAL BEHAVIOUR [None]
  - AMNESIA [None]
  - CONFUSIONAL STATE [None]
  - DEPENDENCE [None]
  - DEPRESSION [None]
  - FEELING ABNORMAL [None]
  - HALLUCINATION, VISUAL [None]
  - HANGOVER [None]
  - INCREASED APPETITE [None]
  - OVERDOSE [None]
  - PANIC ATTACK [None]
  - PARANOIA [None]
  - PERSONALITY CHANGE [None]
  - SLEEP WALKING [None]
  - SLUGGISHNESS [None]
  - SUICIDAL IDEATION [None]
  - WEIGHT INCREASED [None]
